FAERS Safety Report 9575282 (Version 2)
Quarter: 2013Q4

REPORT INFORMATION
  Report Type: Spontaneous
  Country: GB (occurrence: GB)
  Receive Date: 20131001
  Receipt Date: 20131206
  Transmission Date: 20140711
  Serious: Yes (Death, Disabling, Other)
  Sender: FDA-Public Use
  Company Number: GB-009507513-1309GBR012744

PATIENT
  Age: 64 Year
  Sex: Male

DRUGS (6)
  1. SIMVASTATIN [Suspect]
     Dosage: 40 MG, UNK
     Route: 048
  2. AMITRIPTYLINE HYDROCHLORIDE [Concomitant]
     Dosage: 10 MG, QD
     Route: 048
  3. GENOTROPIN [Concomitant]
  4. HYDROCORTISONE [Concomitant]
     Dosage: 10 MG, BID
  5. LEVOTHYROXINE SODIUM [Concomitant]
     Dosage: 200 MICROGRAM, QD
     Route: 048
  6. ACETAMINOPHEN [Concomitant]
     Dosage: `1 G, TID

REACTIONS (4)
  - Acute myocardial infarction [Fatal]
  - Pulmonary fibrosis [Unknown]
  - Condition aggravated [Unknown]
  - Pneumonia [Unknown]
